FAERS Safety Report 23585043 (Version 1)
Quarter: 2024Q1

REPORT INFORMATION
  Report Type: Spontaneous
  Country: US (occurrence: US)
  Receive Date: 20240301
  Receipt Date: 20240301
  Transmission Date: 20240409
  Serious: Yes (Other)
  Sender: FDA-Public Use
  Company Number: US-BAUSCH-BL-2024-003290

PATIENT
  Age: 75 Year
  Sex: Female

DRUGS (1)
  1. CARDIZEM CD [Suspect]
     Active Substance: DILTIAZEM HYDROCHLORIDE
     Indication: Atrial fibrillation
     Dosage: 1 CAPSULE EVERY EVENING
     Route: 065

REACTIONS (2)
  - Atrial fibrillation [Unknown]
  - Product availability issue [Unknown]

NARRATIVE: CASE EVENT DATE: 20240219
